FAERS Safety Report 24322623 (Version 1)
Quarter: 2024Q3

REPORT INFORMATION
  Report Type: Spontaneous
  Country: US (occurrence: None)
  Receive Date: 20240911
  Receipt Date: 20240911
  Transmission Date: 20241016
  Serious: No
  Sender: Public
  Company Number: None

PATIENT
  Sex: Male
  Weight: 70 kg

DRUGS (1)
  1. COSMETICS [Suspect]
     Active Substance: COSMETICS
     Dates: start: 20210228, end: 20220131

REACTIONS (3)
  - Road traffic accident [None]
  - Disorientation [None]
  - Eye allergy [None]
